FAERS Safety Report 6987493-0 (Version None)
Quarter: 2010Q3

REPORT INFORMATION
  Report Type: 
  Country: None (occurrence: None)
  Receive Date: 20100916
  Receipt Date: 20100909
  Transmission Date: 20110219
  Serious: Yes (Death)
  Sender: FDA-Public Use
  Company Number: PHHY2010GB60756

PATIENT
  Age: 29 Year
  Sex: Male

DRUGS (2)
  1. CLOZAPINE [Suspect]
  2. CITALOPRAM HYDROBROMIDE [Suspect]

REACTIONS (3)
  - ASPIRATION [None]
  - CHOKING [None]
  - DRUG TOXICITY [None]
